FAERS Safety Report 5709292-X (Version None)
Quarter: 2008Q2

REPORT INFORMATION
  Report Type: 
  Country: None (occurrence: None)
  Receive Date: 20080418
  Receipt Date: 20080415
  Transmission Date: 20081010
  Serious: Yes (Other)
  Sender: FDA-Public Use
  Company Number: MY-ASTRAZENECA-2008AP02713

PATIENT
  Sex: Female
  Weight: 92.5 kg

DRUGS (3)
  1. SYMBICORT [Suspect]
     Route: 055
     Dates: start: 20080318, end: 20080409
  2. ACTIFED [Concomitant]
  3. ADALAT [Concomitant]
     Indication: HYPERTENSION
     Route: 048
     Dates: start: 20070101

REACTIONS (3)
  - PRURITUS [None]
  - SECRETION DISCHARGE [None]
  - SNEEZING [None]
